FAERS Safety Report 22595048 (Version 1)
Quarter: 2023Q2

REPORT INFORMATION
  Report Type: Spontaneous
  Country: US (occurrence: None)
  Receive Date: 20230612
  Receipt Date: 20230612
  Transmission Date: 20230722
  Serious: No
  Sender: FDA-Public Use
  Company Number: None

PATIENT
  Sex: Female

DRUGS (1)
  1. EPCLUSA [Suspect]
     Active Substance: SOFOSBUVIR\VELPATASVIR
     Dosage: OTHER QUANTITY : 100-100MG;?FREQUENCY : DAILY;?
     Route: 048

REACTIONS (4)
  - Headache [None]
  - Diarrhoea [None]
  - Fatigue [None]
  - Therapy interrupted [None]
